FAERS Safety Report 22661075 (Version 1)
Quarter: 2023Q2

REPORT INFORMATION
  Report Type: Spontaneous
  Country: TN (occurrence: US)
  Receive Date: 20230630
  Receipt Date: 20230630
  Transmission Date: 20230721
  Serious: No
  Sender: FDA-Public Use
  Company Number: TN-BAYER-2023A085748

PATIENT
  Age: 16 Year
  Sex: Male

DRUGS (2)
  1. KOVALTRY [Suspect]
     Active Substance: ANTIHEMOPHILIC FACTOR, HUMAN RECOMBINANT
     Dosage: INFUSE 1250/2030 UNITS (+/-10%) EVERY MONDAY, WEDNESDAY AND FRIDAY
  2. KOVALTRY [Suspect]
     Active Substance: ANTIHEMOPHILIC FACTOR, HUMAN RECOMBINANT
     Dosage: INFUSE 1250/2030 UNITS (+/-10%), PRN

REACTIONS (1)
  - Limb injury [None]

NARRATIVE: CASE EVENT DATE: 20230529
